FAERS Safety Report 4352336-0 (Version None)
Quarter: 2004Q2

REPORT INFORMATION
  Report Type: 
  Country: None (occurrence: None)
  Receive Date: 20040427
  Receipt Date: 20030318
  Transmission Date: 20050107
  Serious: Yes (Hospitalization)
  Sender: FDA-Public Use
  Company Number: WAES 0302USA01387

PATIENT
  Age: 36 Year
  Sex: Female

DRUGS (3)
  1. SINGULAIR [Suspect]
     Indication: ASTHMA
     Dosage: 10 MG/DAILY/PO
     Route: 048
     Dates: start: 19990101
  2. PULMICORT [Concomitant]
  3. ZYRTEC [Concomitant]

REACTIONS (1)
  - EAR INFECTION [None]
